FAERS Safety Report 17875479 (Version 1)
Quarter: 2020Q2

REPORT INFORMATION
  Report Type: Spontaneous
  Country: FR (occurrence: FR)
  Receive Date: 20200609
  Receipt Date: 20200609
  Transmission Date: 20200714
  Serious: Yes (Hospitalization)
  Sender: FDA-Public Use
  Company Number: FR-MYLANLABS-2020M1054512

PATIENT
  Age: 48 Year
  Sex: Male
  Weight: 83 kg

DRUGS (6)
  1. MYLOTARG [Suspect]
     Active Substance: GEMTUZUMAB OZOGAMICIN
     Indication: ACUTE LEUKAEMIA
     Dosage: UNK
     Dates: start: 20200504, end: 20200519
  2. ENDOXAN                            /00021101/ [Suspect]
     Active Substance: CYCLOPHOSPHAMIDE
     Indication: ACUTE LEUKAEMIA
     Dosage: 620 MILLIGRAM, QD
     Route: 041
     Dates: start: 20200427, end: 20200429
  3. ONCOVIN [Suspect]
     Active Substance: VINCRISTINE SULFATE
     Indication: ACUTE LEUKAEMIA
     Dosage: 2 MILLIGRAM
     Route: 042
     Dates: start: 20200430, end: 20200506
  4. CYTARABINE SANDOZ [Suspect]
     Active Substance: CYTARABINE
     Indication: ACUTE LEUKAEMIA
     Dosage: 6100 MILLIGRAM, QD
     Route: 041
     Dates: start: 20200512, end: 20200513
  5. DOXORUBICINE ACCORD [Suspect]
     Active Substance: DOXORUBICIN
     Indication: ACUTE LEUKAEMIA
     Dosage: 52 MILLIGRAM
     Route: 042
     Dates: start: 20200430, end: 20200430
  6. METHOTREXATE MYLAN [Suspect]
     Active Substance: METHOTREXATE SODIUM
     Indication: ACUTE LEUKAEMIA
     Dosage: 2030 MILLIGRAM
     Route: 041
     Dates: start: 20200511, end: 20200511

REACTIONS (1)
  - Myocarditis [Not Recovered/Not Resolved]

NARRATIVE: CASE EVENT DATE: 20200515
